FAERS Safety Report 7969976-X (Version None)
Quarter: 2011Q4

REPORT INFORMATION
  Report Type: 
  Country: None (occurrence: None)
  Receive Date: 20111212
  Receipt Date: 20111129
  Transmission Date: 20120403
  Serious: Yes (Hospitalization)
  Sender: FDA-Public Use
  Company Number: BR-US-EMD SERONO, INC.-7098312

PATIENT
  Sex: Male

DRUGS (8)
  1. AAS INFANTIL [Concomitant]
  2. VENLAFAXINE [Concomitant]
  3. CARBAMAZEPINE [Concomitant]
  4. SIMVASTATIN [Concomitant]
  5. ENALAPRIL MALEATE [Concomitant]
  6. REBIF [Suspect]
     Indication: SECONDARY PROGRESSIVE MULTIPLE SCLEROSIS
     Dates: start: 20110823
  7. OMEPRAZOLE [Concomitant]
  8. DILTIAZEM HCL [Concomitant]

REACTIONS (2)
  - MULTIPLE SCLEROSIS RELAPSE [None]
  - MICTURITION URGENCY [None]
